FAERS Safety Report 21653678 (Version 1)
Quarter: 2022Q4

REPORT INFORMATION
  Report Type: Spontaneous
  Country: FR (occurrence: FR)
  Receive Date: 20221129
  Receipt Date: 20221129
  Transmission Date: 20230113
  Serious: Yes (Other)
  Sender: FDA-Public Use
  Company Number: FR-SUN PHARMACEUTICAL INDUSTRIES LTD-2022RR-366061

PATIENT
  Age: 69 Year
  Sex: Male

DRUGS (4)
  1. METFORMIN [Suspect]
     Active Substance: METFORMIN HYDROCHLORIDE
     Indication: Type 2 diabetes mellitus
     Dosage: 1000 MILLIGRAM, TID
     Route: 065
  2. TERLIPRESSIN [Suspect]
     Active Substance: TERLIPRESSIN
     Indication: Haemodynamic instability
     Dosage: UNK
     Route: 065
  3. NOREPINEPHRINE [Suspect]
     Active Substance: NOREPINEPHRINE
     Indication: Haemodynamic instability
     Dosage: UNK
     Route: 065
  4. EPINEPHRINE [Suspect]
     Active Substance: EPINEPHRINE
     Indication: Haemodynamic instability
     Dosage: UNK
     Route: 065

REACTIONS (5)
  - Overdose [Unknown]
  - Hepatitis E [Unknown]
  - Acute kidney injury [Unknown]
  - Toxicity to various agents [Unknown]
  - Drug ineffective [Unknown]
